FAERS Safety Report 5898726-6 (Version None)
Quarter: 2008Q3

REPORT INFORMATION
  Report Type: 
  Country: None (occurrence: None)
  Receive Date: 20080925
  Receipt Date: 20080508
  Transmission Date: 20090109
  Serious: No
  Sender: FDA-Public Use
  Company Number: A0726892A

PATIENT
  Age: 27 Year
  Sex: Female

DRUGS (2)
  1. WELLBUTRIN XL [Suspect]
     Dosage: 150MG PER DAY
     Route: 048
     Dates: start: 20080425
  2. BIRTH CONTROL PILL [Concomitant]

REACTIONS (1)
  - RASH [None]
